FAERS Safety Report 10183502 (Version 4)
Quarter: 2014Q2

REPORT INFORMATION
  Report Type: Spontaneous
  Country: JP (occurrence: JP)
  Receive Date: 20140520
  Receipt Date: 20140630
  Transmission Date: 20141212
  Serious: Yes (Hospitalization)
  Sender: FDA-Public Use
  Company Number: JP-JNJFOC-20140509100

PATIENT
  Age: 93 Year
  Sex: Male
  Weight: 63 kg

DRUGS (7)
  1. TRAMCET [Suspect]
     Indication: PAIN
     Route: 048
     Dates: start: 20140415, end: 20140501
  2. TAKEPRON [Concomitant]
     Indication: GASTROOESOPHAGEAL REFLUX DISEASE
     Route: 048
  3. FEBURIC [Concomitant]
     Indication: HYPERURICAEMIA
     Route: 048
  4. LUNESTA [Concomitant]
     Indication: INSOMNIA
     Route: 048
  5. ROZEREM [Concomitant]
     Indication: INSOMNIA
     Route: 048
  6. SENNOSIDE [Concomitant]
     Indication: CONSTIPATION
     Route: 048
  7. GASMOTIN [Concomitant]
     Indication: GASTRITIS
     Route: 048

REACTIONS (3)
  - Cardiac failure chronic [Recovered/Resolved]
  - Pulmonary oedema [Recovered/Resolved]
  - Depressed level of consciousness [Recovered/Resolved]
